FAERS Safety Report 12606567 (Version 1)
Quarter: 2016Q3

REPORT INFORMATION
  Report Type: Spontaneous
  Country: NL (occurrence: NL)
  Receive Date: 20160729
  Receipt Date: 20160729
  Transmission Date: 20161109
  Serious: Yes (Other)
  Sender: FDA-Public Use
  Company Number: NL-TEVA-679182ISR

PATIENT
  Age: 4 Decade
  Sex: Female

DRUGS (3)
  1. HYDROCORTISONE. [Suspect]
     Active Substance: HYDROCORTISONE
     Indication: ECZEMA
     Route: 061
  2. MOMETASONE [Suspect]
     Active Substance: MOMETASONE
     Indication: ECZEMA
     Dosage: 1 MG/G
     Route: 061
  3. TACROLIMUS. [Concomitant]
     Active Substance: TACROLIMUS
     Indication: ECZEMA
     Dosage: 0.3 MG/G
     Route: 065

REACTIONS (1)
  - Steroid withdrawal syndrome [Recovering/Resolving]
